FAERS Safety Report 8214290-0 (Version None)
Quarter: 2012Q1

REPORT INFORMATION
  Report Type: 
  Country: None (occurrence: None)
  Receive Date: 20120315
  Receipt Date: 20120315
  Transmission Date: 20120608
  Serious: No
  Sender: FDA-Public Use
  Company Number: None

PATIENT

DRUGS (2)
  1. SUDACARE SHOWER SOOTHERS (OTHER NON-THERAPEUTIC PRODUCTS) [Suspect]
     Dosage: 2 IN 1 DAY, INHALTION
  2. DAYQUIL (VICKS FORMULA 44M) UNKNOWN [Suspect]
     Indication: PRODUCT USED FOR UNKNOWN INDICATION
     Dosage: DAILY DOSE TEXT: ORAL
     Route: 048

REACTIONS (4)
  - BURNING SENSATION [None]
  - PAIN [None]
  - ERYTHEMA [None]
  - DERMATITIS [None]
